FAERS Safety Report 4661708-6 (Version None)
Quarter: 2005Q2

REPORT INFORMATION
  Report Type: 
  Country: None (occurrence: None)
  Receive Date: 20050511
  Receipt Date: 20050511
  Transmission Date: 20051028
  Serious: Yes (Hospitalization, Other)
  Sender: FDA-Public Use
  Company Number: None

PATIENT
  Sex: Male
  Weight: 62.5 kg

DRUGS (4)
  1. NAPROXEN [Suspect]
     Indication: INFLAMMATION
     Dosage: 500 MG PO BID
     Route: 048
  2. NAPROXEN [Suspect]
     Indication: PAIN
     Dosage: 500 MG PO BID
     Route: 048
  3. NAPROXEN [Suspect]
     Indication: SYSTEMIC LUPUS ERYTHEMATOSUS
     Dosage: 500 MG PO BID
     Route: 048
  4. PREDNISONE TAB [Concomitant]

REACTIONS (1)
  - GASTROINTESTINAL HAEMORRHAGE [None]
